FAERS Safety Report 6874767-7 (Version None)
Quarter: 2010Q3

REPORT INFORMATION
  Report Type: 
  Country: None (occurrence: None)
  Receive Date: 20100723
  Receipt Date: 20100715
  Transmission Date: 20110219
  Serious: Yes (Hospitalization, Other)
  Sender: FDA-Public Use
  Company Number: 2008-187211-NL

PATIENT
  Age: 29 Year
  Sex: Female
  Weight: 95.709 kg

DRUGS (4)
  1. NUVARING [Suspect]
     Indication: MENORRHAGIA
     Dosage: 1 DF;Q3W;VAG
     Route: 067
     Dates: start: 20070801, end: 20070930
  2. METFORMIN HCL [Concomitant]
  3. ALTACE [Concomitant]
  4. NAPROXEN [Concomitant]

REACTIONS (19)
  - COSTOCHONDRITIS [None]
  - DEEP VEIN THROMBOSIS [None]
  - DYSMENORRHOEA [None]
  - DYSPAREUNIA [None]
  - DYSTROPHIC CALCIFICATION [None]
  - ECCHYMOSIS [None]
  - GASTROOESOPHAGEAL REFLUX DISEASE [None]
  - HAEMATOCHEZIA [None]
  - HEADACHE [None]
  - HYPOCOAGULABLE STATE [None]
  - INCREASED APPETITE [None]
  - INJECTION SITE PAIN [None]
  - MENORRHAGIA [None]
  - POST PROCEDURAL COMPLICATION [None]
  - PREGNANCY WITH IMPLANT CONTRACEPTIVE [None]
  - THROMBOPHLEBITIS SUPERFICIAL [None]
  - TREATMENT NONCOMPLIANCE [None]
  - UTERINE DILATION AND CURETTAGE [None]
  - VOMITING [None]
